FAERS Safety Report 7843803-3 (Version None)
Quarter: 2011Q4

REPORT INFORMATION
  Report Type: 
  Country: None (occurrence: None)
  Receive Date: 20111025
  Receipt Date: 20111013
  Transmission Date: 20120403
  Serious: Yes (Other)
  Sender: FDA-Public Use
  Company Number: US-BAYER-200924033NA

PATIENT
  Age: 17 Year
  Sex: Female

DRUGS (2)
  1. YAZ [Suspect]
     Indication: MENSTRUATION IRREGULAR
     Dosage: 1 DF (DAILY DOSE), QD, ORAL
     Route: 048
  2. BEYAZ [Suspect]

REACTIONS (9)
  - ASTHENIA [None]
  - ABDOMINAL DISTENSION [None]
  - MENORRHAGIA [None]
  - PALPITATIONS [None]
  - DIARRHOEA [None]
  - NO ADVERSE EVENT [None]
  - SYNCOPE [None]
  - MYDRIASIS [None]
  - FEELING ABNORMAL [None]
